FAERS Safety Report 8770634 (Version 2)
Quarter: 2012Q4

REPORT INFORMATION
  Report Type: Report from Study
  Country: KE (occurrence: KE)
  Receive Date: 20120906
  Receipt Date: 20121001
  Transmission Date: 20130627
  Serious: Yes (Life-Threatening)
  Sender: FDA-Public Use
  Company Number: KE-GILEAD-2012-0060680

PATIENT
  Age: 28 Year
  Sex: Male

DRUGS (1)
  1. TENOFOVIR DISOPROXIL FUMARATE [Suspect]
     Indication: PROPHYLAXIS AGAINST HIV INFECTION
     Dosage: UNK
     Dates: start: 20100611, end: 20120622

REACTIONS (1)
  - Affective disorder [Not Recovered/Not Resolved]
